FAERS Safety Report 11458527 (Version 1)
Quarter: 2015Q3

REPORT INFORMATION
  Report Type: Spontaneous
  Country: US (occurrence: US)
  Receive Date: 20150904
  Receipt Date: 20150904
  Transmission Date: 20151125
  Serious: Yes (Other)
  Sender: FDA-Public Use
  Company Number: US-TAKEDA-2014TUS005371

PATIENT

DRUGS (18)
  1. JANUVIA [Concomitant]
     Active Substance: SITAGLIPTIN PHOSPHATE
     Dosage: 100 MG, QD
     Route: 048
     Dates: start: 20140630
  2. ACTOS [Suspect]
     Active Substance: PIOGLITAZONE HYDROCHLORIDE
     Dosage: 30 MG, UNK
     Route: 048
     Dates: start: 20120815, end: 20140208
  3. LANTUS [Concomitant]
     Active Substance: INSULIN GLARGINE
     Dosage: 15-20 UNITS
     Dates: start: 20080512
  4. NOVOLOG [Concomitant]
     Active Substance: INSULIN ASPART
     Indication: DIABETES MELLITUS
     Dosage: DOASAGE : TWO TO FIVE UNITS AT LUNCH AND SLIDING SCALE
     Dates: start: 20140428, end: 20140630
  5. ACTOS [Suspect]
     Active Substance: PIOGLITAZONE HYDROCHLORIDE
     Indication: TYPE 2 DIABETES MELLITUS
     Dosage: 45 MG, UNK
     Route: 048
     Dates: start: 20050503, end: 200807
  6. LANTUS [Concomitant]
     Active Substance: INSULIN GLARGINE
     Dosage: 15-20 UNITS
     Dates: start: 20061204
  7. LANTUS [Concomitant]
     Active Substance: INSULIN GLARGINE
     Dosage: 20 IU, UNK
     Dates: start: 20140424
  8. LANTUS [Concomitant]
     Active Substance: INSULIN GLARGINE
     Dosage: 15-20 UNITS
     Dates: start: 20090525
  9. AVANDIA [Concomitant]
     Active Substance: ROSIGLITAZONE MALEATE
     Dosage: 4 MG, UNK
     Dates: start: 20041119, end: 20050404
  10. DIABETA                            /00145301/ [Concomitant]
     Dosage: 5 MG, QD IN AM
     Dates: start: 20140424
  11. LANTUS [Concomitant]
     Active Substance: INSULIN GLARGINE
     Dosage: 18-20 IU
     Dates: start: 20140127, end: 20140417
  12. ACTOS [Suspect]
     Active Substance: PIOGLITAZONE HYDROCHLORIDE
     Dosage: 45 MG, UNK
     Route: 048
     Dates: start: 20090611, end: 20120815
  13. LANTUS [Concomitant]
     Active Substance: INSULIN GLARGINE
     Dosage: 15-20 UNITS
     Dates: start: 20060827
  14. LANTUS [Concomitant]
     Active Substance: INSULIN GLARGINE
     Dosage: 15 IU, UNK
     Dates: start: 20090715, end: 20140305
  15. METFORMIN [Concomitant]
     Active Substance: METFORMIN HYDROCHLORIDE
     Dosage: DOSAGE : 500MG DAILY X2 OR 1000MG X2
     Dates: start: 20030806
  16. GLYBURIDE/METFORMIN [Concomitant]
     Active Substance: GLYBURIDE\METFORMIN
     Dosage: UNK
     Dates: start: 20030806
  17. LANTUS [Concomitant]
     Active Substance: INSULIN GLARGINE
     Dosage: 15-20 UNITS
     Dates: start: 20070614
  18. GLUCOVANCE [Concomitant]
     Active Substance: GLYBURIDE\METFORMIN HYDROCHLORIDE
     Indication: DIABETES MELLITUS
     Dosage: 5 MG, QD
     Dates: start: 20091023, end: 20131210

REACTIONS (1)
  - Bladder cancer [Unknown]

NARRATIVE: CASE EVENT DATE: 20140320
